FAERS Safety Report 6980611-X (Version None)
Quarter: 2010Q3

REPORT INFORMATION
  Report Type: 
  Country: None (occurrence: None)
  Receive Date: 20100914
  Receipt Date: 20100901
  Transmission Date: 20110219
  Serious: Yes (Hospitalization)
  Sender: FDA-Public Use
  Company Number: AU-NAPPMUNDI-USA-2008-0035759

PATIENT
  Sex: Male
  Weight: 60 kg

DRUGS (8)
  1. BLINDED BTDS 10 MG [Suspect]
     Indication: POST HERPETIC NEURALGIA
     Dosage: 10 MCG, Q1H
     Route: 062
     Dates: start: 20080929, end: 20081105
  2. BLINDED BTDS 20 MG [Suspect]
     Indication: POST HERPETIC NEURALGIA
     Dosage: 10 MCG, Q1H
     Route: 062
     Dates: start: 20080929, end: 20081105
  3. BLINDED BTDS 30 MG [Suspect]
     Indication: POST HERPETIC NEURALGIA
     Dosage: 10 MCG, Q1H
     Route: 062
     Dates: start: 20080929, end: 20081105
  4. BLINDED BTDS 40 MG [Suspect]
     Indication: POST HERPETIC NEURALGIA
     Dosage: 10 MCG, Q1H
     Route: 062
     Dates: start: 20080929, end: 20081105
  5. BLINDED BTDS PATCH [Suspect]
     Indication: POST HERPETIC NEURALGIA
     Dosage: 10 MCG, Q1H
     Route: 062
     Dates: start: 20080929, end: 20081105
  6. BLINDED NONE [Suspect]
     Indication: POST HERPETIC NEURALGIA
     Dosage: 10 MCG, Q1H
     Route: 062
     Dates: start: 20080929, end: 20081105
  7. BLINDED PLACEBO TRANSDERMAL PATCH [Suspect]
     Indication: POST HERPETIC NEURALGIA
     Dosage: 10 MCG, Q1H
     Route: 062
     Dates: start: 20080929, end: 20081105
  8. ACETAMINOPHEN [Concomitant]
     Dosage: UNK, PRN

REACTIONS (1)
  - RESPIRATORY TRACT INFECTION [None]
